FAERS Safety Report 5769221-X (Version None)
Quarter: 2008Q2

REPORT INFORMATION
  Report Type: 
  Country: None (occurrence: None)
  Receive Date: 20080612
  Receipt Date: 20080325
  Transmission Date: 20081010
  Serious: No
  Sender: FDA-Public Use
  Company Number: US-ABBOTT-08P-163-0444106-00

PATIENT
  Sex: Female
  Weight: 54.48 kg

DRUGS (7)
  1. HUMIRA [Suspect]
     Indication: RHEUMATOID ARTHRITIS
     Route: 058
     Dates: start: 20080131, end: 20080215
  2. ORENCIA [Concomitant]
     Indication: RHEUMATOID ARTHRITIS
     Dates: start: 20080201
  3. TRAZODONE HCL [Concomitant]
     Indication: DRUG USE FOR UNKNOWN INDICATION
  4. MELOXICAM [Concomitant]
     Indication: PAIN
  5. ULTRAM ER [Concomitant]
     Indication: PAIN
  6. LEFLUNOMIDE [Concomitant]
     Indication: PAIN
  7. AMLODIPINE [Concomitant]
     Indication: HYPERTENSION

REACTIONS (3)
  - HYPERSENSITIVITY [None]
  - INJECTION SITE REACTION [None]
  - URTICARIA [None]
